FAERS Safety Report 6140357-7 (Version None)
Quarter: 2009Q1

REPORT INFORMATION
  Report Type: 
  Country: None (occurrence: None)
  Receive Date: 20090330
  Receipt Date: 20090325
  Transmission Date: 20090719
  Serious: Yes (Other)
  Sender: FDA-Public Use
  Company Number: B0564689A

PATIENT
  Age: 5 Year
  Sex: Male

DRUGS (7)
  1. THIOGUANINE [Suspect]
     Indication: ACUTE MYELOID LEUKAEMIA
  2. BUSULPHAN (FORMULATION UNKNOWN) (GENERIC) (BUSULFAN) [Suspect]
     Indication: ACUTE MYELOID LEUKAEMIA
  3. DEXAMETHASONE [Suspect]
     Indication: ACUTE MYELOID LEUKAEMIA
  4. CYTARABINE [Suspect]
     Indication: ACUTE MYELOID LEUKAEMIA
  5. DAUNORUBICIN (FORMULATION UNKNOWN) (DAUNORUBICIN) [Suspect]
     Indication: ACUTE MYELOID LEUKAEMIA
  6. ETOPOSIDE [Suspect]
     Indication: ACUTE MYELOID LEUKAEMIA
  7. CYCLOPHOSPHAMIDE [Suspect]
     Indication: ACUTE MYELOID LEUKAEMIA

REACTIONS (1)
  - MUCOEPIDERMOID CARCINOMA [None]
